FAERS Safety Report 25526395 (Version 1)
Quarter: 2025Q3

REPORT INFORMATION
  Report Type: Report from Study
  Country: EU (occurrence: EU)
  Receive Date: 20250707
  Receipt Date: 20250707
  Transmission Date: 20251020
  Serious: Yes (Hospitalization)
  Sender: PFIZER
  Company Number: EU-ASTRAZENECA-202503GLO009695IT

PATIENT
  Age: 43 Year
  Sex: Female
  Weight: 50 kg

DRUGS (8)
  1. CARBOPLATIN [Suspect]
     Active Substance: CARBOPLATIN
     Indication: Triple negative breast cancer
     Dosage: 1.5 AUC, ONCE EVERY 1 WK
     Route: 042
     Dates: start: 20241206, end: 20250110
  2. PEMBROLIZUMAB [Suspect]
     Active Substance: PEMBROLIZUMAB
     Indication: Triple negative breast cancer
     Dosage: 200 MG, ONCE EVERY 3 WK
     Route: 042
     Dates: start: 20241206, end: 20250207
  3. PACLITAXEL [Suspect]
     Active Substance: PACLITAXEL
     Indication: Triple negative breast cancer
     Dosage: 80 MG/M2, ONCE EVERY 1 WK
     Route: 042
     Dates: start: 20241206, end: 20250214
  4. ONDANSETRON HYDROCHLORIDE [Concomitant]
     Active Substance: ONDANSETRON HYDROCHLORIDE
     Indication: Premedication
     Dosage: 8 MG, ONCE EVERY 1 WK
     Route: 042
     Dates: start: 20241208
  5. DEXAMETHASONE [Concomitant]
     Active Substance: DEXAMETHASONE
     Indication: Nausea
     Route: 048
     Dates: start: 20241207, end: 20241207
  6. DEXAMETHASONE [Concomitant]
     Active Substance: DEXAMETHASONE
     Indication: Premedication
     Dosage: 16 MG, ONCE EVERY 1 WK
     Route: 042
     Dates: start: 20241206
  7. PANTOPRAZOLE SODIUM [Concomitant]
     Active Substance: PANTOPRAZOLE SODIUM
     Indication: Premedication
     Dosage: 40 MG, QD
     Route: 048
     Dates: start: 20241206
  8. CHLORPHENIRAMINE MALEATE [Concomitant]
     Active Substance: CHLORPHENIRAMINE MALEATE
     Indication: Premedication
     Dosage: 1 VIAL ONCE EVERY 1 WK
     Route: 042
     Dates: start: 20241206

REACTIONS (1)
  - Renal failure [Not Recovered/Not Resolved]

NARRATIVE: CASE EVENT DATE: 20250311
